FAERS Safety Report 6036500-0 (Version None)
Quarter: 2009Q1

REPORT INFORMATION
  Report Type: 
  Country: None (occurrence: None)
  Receive Date: 20090112
  Receipt Date: 20090106
  Transmission Date: 20090719
  Serious: Yes (Death)
  Sender: FDA-Public Use
  Company Number: CERZ-1000475

PATIENT
  Age: 7 Year
  Sex: Female

DRUGS (3)
  1. CEREZYME [Suspect]
     Indication: GAUCHER'S DISEASE
     Dosage: 120 U/KG, Q2W, INTRAVENOUS; 1000 U Q2W INTRAVENOUS; 800 U Q2W INTRAVENOUS
     Route: 042
     Dates: start: 20030813, end: 20040824
  2. CEREZYME [Suspect]
     Indication: GAUCHER'S DISEASE
     Dosage: 120 U/KG, Q2W, INTRAVENOUS; 1000 U Q2W INTRAVENOUS; 800 U Q2W INTRAVENOUS
     Route: 042
     Dates: start: 20040809, end: 20050915
  3. CEREZYME [Suspect]
     Indication: GAUCHER'S DISEASE
     Dosage: 120 U/KG, Q2W, INTRAVENOUS; 1000 U Q2W INTRAVENOUS; 800 U Q2W INTRAVENOUS
     Route: 042
     Dates: start: 20050930, end: 20081227

REACTIONS (4)
  - CARDIO-RESPIRATORY ARREST [None]
  - HEART RATE INCREASED [None]
  - PYREXIA [None]
  - STATUS EPILEPTICUS [None]
